FAERS Safety Report 9026568 (Version 1)
Quarter: 2013Q1

REPORT INFORMATION
  Report Type: Spontaneous
  Country: DK (occurrence: None)
  Receive Date: 20130109
  Receipt Date: 20130109
  Transmission Date: 20140127
  Serious: Yes (Other)
  Sender: FDA-Public Use
  Company Number: 2013MA000076

PATIENT
  Age: 26 Year
  Sex: 0

DRUGS (3)
  1. DIAZEPAM TABLETS UPS, 10 MG (PUREPAC) (DIAZEPAM) [Suspect]
     Indication: VOMITING
     Route: 048
     Dates: start: 20121217, end: 20121217
  2. METHADONE (METHADONE) [Suspect]
     Indication: VOMITING
     Route: 048
     Dates: start: 20121217, end: 20121217
  3. ZOLPIDEM [Concomitant]

REACTIONS (5)
  - Incoherent [None]
  - Fatigue [None]
  - Balance disorder [None]
  - Aggression [None]
  - Dysstasia [None]
